FAERS Safety Report 25237245 (Version 1)
Quarter: 2025Q2

REPORT INFORMATION
  Report Type: Spontaneous
  Country: CN (occurrence: CN)
  Receive Date: 20250425
  Receipt Date: 20250425
  Transmission Date: 20250716
  Serious: Yes (Other)
  Sender: NOVARTIS
  Company Number: CN-002147023-NVSC2025CN066875

PATIENT
  Age: 13 Year
  Sex: Female
  Weight: 26.5 kg

DRUGS (3)
  1. TRILEPTAL [Suspect]
     Active Substance: OXCARBAZEPINE
     Indication: Epilepsy
     Dosage: 0.3 G, BID
     Route: 048
     Dates: start: 20250126, end: 20250218
  2. TRILEPTAL [Suspect]
     Active Substance: OXCARBAZEPINE
     Dosage: 0.075 G, QD
     Route: 048
     Dates: start: 20250126, end: 20250218
  3. METHYLPREDNISOLONE SODIUM SUCCINATE [Suspect]
     Active Substance: METHYLPREDNISOLONE SODIUM SUCCINATE
     Indication: Pneumonia
     Dosage: 40 MG, TID (INTRAVENOUS DRIP)
     Route: 050
     Dates: start: 20250126, end: 20250128

REACTIONS (2)
  - Hyponatraemia [Recovering/Resolving]
  - Off label use [Unknown]

NARRATIVE: CASE EVENT DATE: 20250127
